FAERS Safety Report 5958022-5 (Version None)
Quarter: 2008Q4

REPORT INFORMATION
  Report Type: 
  Country: None (occurrence: None)
  Receive Date: 20081119
  Receipt Date: 20081110
  Transmission Date: 20090506
  Serious: Yes (Hospitalization)
  Sender: FDA-Public Use
  Company Number: PHHY2008JP28130

PATIENT
  Sex: Female

DRUGS (4)
  1. FEMARA [Suspect]
     Indication: BREAST CANCER
     Route: 048
  2. ANTI-PARKINSON AGENTS [Concomitant]
  3. ANTIHYPERTENSIVE DRUGS [Concomitant]
  4. ANTICOAGULANTS [Concomitant]

REACTIONS (2)
  - RENAL FAILURE ACUTE [None]
  - URINARY TRACT INFECTION [None]
